FAERS Safety Report 18817515 (Version 9)
Quarter: 2024Q1

REPORT INFORMATION
  Report Type: Spontaneous
  Country: US (occurrence: US)
  Receive Date: 20210201
  Receipt Date: 20240320
  Transmission Date: 20240409
  Serious: No
  Sender: FDA-Public Use
  Company Number: US-PFIZER INC-2021065091

PATIENT
  Age: 63 Year
  Sex: Female
  Weight: 59.41 kg

DRUGS (5)
  1. XELJANZ [Suspect]
     Active Substance: TOFACITINIB CITRATE
     Dosage: 5 MG
  2. THERAGEN [Concomitant]
     Active Substance: CAPSAICIN
  3. NITROFURANTOIN [Concomitant]
     Active Substance: NITROFURANTOIN
  4. PENICILLIN G [Concomitant]
     Active Substance: PENICILLIN G
  5. IODINE [Concomitant]
     Active Substance: IODINE

REACTIONS (2)
  - Cystitis [Recovered/Resolved]
  - Product dispensing error [Unknown]
